FAERS Safety Report 4999339-0 (Version None)
Quarter: 2006Q2

REPORT INFORMATION
  Report Type: 
  Country: None (occurrence: None)
  Receive Date: 20060509
  Receipt Date: 20060509
  Transmission Date: 20061013
  Serious: Yes (Life-Threatening, Hospitalization)
  Sender: FDA-Public Use
  Company Number: None

PATIENT
  Age: 24 Year
  Sex: Female

DRUGS (4)
  1. ASPIRIN [Suspect]
     Indication: SUICIDE ATTEMPT
     Dosage: 32.5 G PO ONCE
     Route: 048
     Dates: start: 20051129
  2. SERTRALINE [Concomitant]
  3. DEXTROAMPHETAMINE [Concomitant]
  4. AMPHETAMINE [Concomitant]

REACTIONS (6)
  - HEADACHE [None]
  - INTENTIONAL OVERDOSE [None]
  - NAUSEA [None]
  - SUICIDE ATTEMPT [None]
  - TINNITUS [None]
  - VOMITING [None]
